FAERS Safety Report 23606229 (Version 1)
Quarter: 2024Q1

REPORT INFORMATION
  Report Type: Spontaneous
  Country: CN (occurrence: CN)
  Receive Date: 20240307
  Receipt Date: 20240307
  Transmission Date: 20240409
  Serious: Yes (Other)
  Sender: FDA-Public Use
  Company Number: CN-009507513-2402CHN002695

PATIENT
  Age: 57 Year
  Sex: Male

DRUGS (2)
  1. POSACONAZOLE [Suspect]
     Active Substance: POSACONAZOLE
     Indication: Mucormycosis
     Dosage: 100 MILLIGRAM, BID
     Dates: start: 2022
  2. PIPERACILLIN AND TAZOBACTAM [Concomitant]
     Active Substance: PIPERACILLIN SODIUM\TAZOBACTAM SODIUM
     Indication: Anti-infective therapy
     Dosage: 4.5 GRAM, Q8H
     Dates: start: 2022

REACTIONS (2)
  - Multiple organ dysfunction syndrome [Unknown]
  - Product use in unapproved indication [Unknown]

NARRATIVE: CASE EVENT DATE: 20220101
